FAERS Safety Report 6241519-0 (Version None)
Quarter: 2009Q2

REPORT INFORMATION
  Report Type: 
  Country: None (occurrence: None)
  Receive Date: 20090623
  Receipt Date: 20071106
  Transmission Date: 20091009
  Serious: Yes (Hospitalization)
  Sender: FDA-Public Use
  Company Number: DE-ROCHE-364756

PATIENT
  Sex: Male

DRUGS (37)
  1. DACLIZUMAB [Suspect]
     Route: 042
     Dates: start: 20040114, end: 20040114
  2. DACLIZUMAB [Suspect]
     Route: 042
     Dates: start: 20040127, end: 20040309
  3. MYCOPHENOLATE MOFETIL [Suspect]
     Route: 048
     Dates: start: 20040113
  4. TACROLIMUS [Suspect]
     Route: 048
     Dates: start: 20040113
  5. TACROLIMUS [Suspect]
     Route: 048
     Dates: start: 20040131
  6. TACROLIMUS [Suspect]
     Route: 048
     Dates: start: 20040825
  7. TACROLIMUS [Suspect]
     Route: 048
     Dates: start: 20050411
  8. TACROLIMUS [Suspect]
     Route: 048
     Dates: start: 20050613
  9. CYCLOSPORINE [Suspect]
     Route: 065
  10. SIROLIMUS [Suspect]
     Route: 065
  11. MYFORTIC [Suspect]
     Route: 048
     Dates: start: 20050108
  12. DECORTIN [Suspect]
     Route: 048
     Dates: start: 20040114
  13. PREDNISOLONE [Suspect]
     Route: 042
     Dates: start: 20040113
  14. PREDNISOLONE [Suspect]
     Dosage: FORM: SYPRED.
     Route: 048
     Dates: start: 20040128
  15. PREDNISOLONE [Suspect]
     Route: 048
     Dates: start: 20040114
  16. PREDNISOLONE [Suspect]
     Route: 048
     Dates: start: 20040119
  17. PREDNISOLONE [Suspect]
     Dosage: ROUTE: PL
     Route: 048
     Dates: start: 20040204
  18. PREDNISOLONE [Suspect]
     Route: 048
     Dates: start: 20040209, end: 20040224
  19. PREDNISOLONE [Suspect]
     Route: 048
     Dates: start: 20040229
  20. PREDNISOLONE [Suspect]
     Route: 048
     Dates: start: 20040416
  21. PANTOZOL [Concomitant]
     Route: 048
     Dates: start: 20040113
  22. BISOPROLOL FUMARATE [Concomitant]
     Route: 048
     Dates: start: 20040113
  23. BISOPROLOL FUMARATE [Concomitant]
     Route: 048
     Dates: start: 20040127
  24. CEFUROXIME AXETIL [Concomitant]
     Route: 048
     Dates: start: 20040114
  25. DELIX [Concomitant]
     Route: 048
     Dates: start: 20040126
  26. DELIX [Concomitant]
     Route: 048
     Dates: start: 20040207
  27. NATRON [Concomitant]
     Route: 048
     Dates: start: 20040114
  28. ZYLORIC 100 [Concomitant]
     Route: 048
     Dates: start: 20040128
  29. REDUCTO-SPEZIAL [Concomitant]
     Route: 048
     Dates: start: 20040114
  30. CYNT [Concomitant]
     Route: 048
     Dates: start: 20040204
  31. CYNT [Concomitant]
     Route: 048
     Dates: start: 20040310
  32. ACTRAPID [Concomitant]
     Dosage: DOSE AND FREQUENCY: ACCORDING TO BLOOD GLUCOSE.
  33. DILTIAZEM [Concomitant]
     Route: 048
     Dates: start: 20040113
  34. DILTIAZEM [Concomitant]
     Route: 048
     Dates: start: 20040310
  35. CALCIMAGON-D3 [Concomitant]
     Route: 048
     Dates: start: 20040114
  36. COTRIM [Concomitant]
     Route: 048
     Dates: start: 20040123
  37. TORSEMIDE [Concomitant]
     Route: 048
     Dates: start: 20040310

REACTIONS (1)
  - CYTOMEGALOVIRUS INFECTION [None]
